FAERS Safety Report 4978766-1 (Version None)
Quarter: 2006Q2

REPORT INFORMATION
  Report Type: 
  Country: None (occurrence: None)
  Receive Date: 20060420
  Receipt Date: 20030605
  Transmission Date: 20061013
  Serious: Yes (Hospitalization, Other)
  Sender: FDA-Public Use
  Company Number: US-MERCK-0306USA00730

PATIENT
  Age: 49 Year
  Sex: Female
  Weight: 70 kg

DRUGS (4)
  1. VIOXX [Suspect]
     Indication: ARTHRITIS
     Route: 048
     Dates: start: 19990811, end: 20000201
  2. VIOXX [Suspect]
     Indication: MUSCULOSKELETAL CHEST PAIN
     Route: 048
     Dates: start: 19990811, end: 20000201
  3. PRILOSEC [Concomitant]
     Route: 065
  4. [THERAPY UNSPECIFIED] [Concomitant]
     Indication: PAIN
     Route: 065

REACTIONS (21)
  - ANGINA PECTORIS [None]
  - ARRHYTHMIA [None]
  - ARTHRALGIA [None]
  - BLOOD PRESSURE INCREASED [None]
  - CLAVICLE FRACTURE [None]
  - CONTUSION [None]
  - CONVULSION [None]
  - COSTOCHONDRITIS [None]
  - DRUG INTERACTION [None]
  - HEADACHE [None]
  - INTERVERTEBRAL DISC DISORDER [None]
  - MIGRAINE WITH AURA [None]
  - MUSCLE SPASMS [None]
  - MUSCULOSKELETAL PAIN [None]
  - NECK INJURY [None]
  - ORTHOPNOEA [None]
  - PYREXIA [None]
  - RADICULAR SYNDROME [None]
  - ROAD TRAFFIC ACCIDENT [None]
  - SCINTILLATING SCOTOMA [None]
  - VISUAL DISTURBANCE [None]
